FAERS Safety Report 5788978-5 (Version None)
Quarter: 2008Q2

REPORT INFORMATION
  Report Type: 
  Country: None (occurrence: None)
  Receive Date: 20080623
  Receipt Date: 20080611
  Transmission Date: 20081010
  Serious: Yes (Hospitalization)
  Sender: FDA-Public Use
  Company Number: 2008AL007202

PATIENT
  Age: 18 Year
  Sex: Male

DRUGS (6)
  1. METFORMIN HYDROCHLORIDE TABLETS, 500 MG (PUREPAC) (METFORMIN HYDROCHLO [Suspect]
     Indication: WEIGHT CONTROL
     Dosage: 250 MG;BID
     Dates: end: 20080405
  2. CLOZARIL [Concomitant]
  3. CLOZARIL [Concomitant]
  4. DOCUSATE SODIUM [Concomitant]
  5. SENNA [Concomitant]
  6. HYOSCINE HBR HYT [Concomitant]

REACTIONS (6)
  - DEHYDRATION [None]
  - DRUG INTERACTION [None]
  - GASTROENTERITIS VIRAL [None]
  - NAUSEA [None]
  - NEUTROPENIA [None]
  - PNEUMONIA [None]
